FAERS Safety Report 12147002 (Version 3)
Quarter: 2016Q3

REPORT INFORMATION
  Report Type: Spontaneous
  Country: US (occurrence: US)
  Receive Date: 20160304
  Receipt Date: 20160801
  Transmission Date: 20161109
  Serious: Yes (Other)
  Sender: FDA-Public Use
  Company Number: US-TEVA-639935USA

PATIENT
  Age: 64 Year
  Sex: Female

DRUGS (2)
  1. ZECUITY [Suspect]
     Active Substance: SUMATRIPTAN SUCCINATE
     Route: 062
     Dates: start: 20160218, end: 20160218
  2. ZECUITY [Suspect]
     Active Substance: SUMATRIPTAN SUCCINATE
     Route: 062
     Dates: start: 20160218, end: 20160218

REACTIONS (10)
  - Application site paraesthesia [Unknown]
  - Sunburn [Recovered/Resolved]
  - Application site pruritus [Unknown]
  - Application site exfoliation [Recovered/Resolved]
  - Application site erythema [Recovered/Resolved]
  - Application site urticaria [Unknown]
  - Application site inflammation [Recovered/Resolved]
  - Hypersensitivity [Recovered/Resolved]
  - Application site warmth [Unknown]
  - Application site pain [Unknown]

NARRATIVE: CASE EVENT DATE: 201602
